FAERS Safety Report 17820715 (Version 1)
Quarter: 2020Q2

REPORT INFORMATION
  Report Type: Spontaneous
  Country: DE (occurrence: DE)
  Receive Date: 20200525
  Receipt Date: 20200525
  Transmission Date: 20200714
  Serious: Yes (Hospitalization)
  Sender: FDA-Public Use
  Company Number: PHHY2019DE210425

PATIENT
  Sex: Female
  Weight: 66 kg

DRUGS (4)
  1. PEGFILGRASTIM [Suspect]
     Active Substance: PEGFILGRASTIM
     Indication: PRODUCT USED FOR UNKNOWN INDICATION
     Dosage: UNK UNK, CYCLIC (1ST CYCLE)
     Route: 065
     Dates: start: 20190713, end: 20190713
  2. PEGFILGRASTIM [Suspect]
     Active Substance: PEGFILGRASTIM
     Dosage: UNK UNK, CYCLIC (2ND CYCLE)
     Route: 065
     Dates: start: 20190727, end: 20190727
  3. PEGFILGRASTIM [Suspect]
     Active Substance: PEGFILGRASTIM
     Dosage: UNK UNK, CYCLIC (4TH CYCLE)
     Route: 065
     Dates: start: 20190824, end: 20190824
  4. PEGFILGRASTIM [Suspect]
     Active Substance: PEGFILGRASTIM
     Dosage: UNK UNK, CYCLIC (3RD CYCLE)
     Route: 065
     Dates: start: 20190810, end: 20190810

REACTIONS (6)
  - Productive cough [Unknown]
  - Emphysema [Recovered/Resolved]
  - Febrile neutropenia [Unknown]
  - Pneumonia [Unknown]
  - Body temperature increased [Unknown]
  - General physical health deterioration [Unknown]

NARRATIVE: CASE EVENT DATE: 20190830
